FAERS Safety Report 5564712-9 (Version None)
Quarter: 2007Q4

REPORT INFORMATION
  Report Type: 
  Country: None (occurrence: None)
  Receive Date: 20071212
  Receipt Date: 20071129
  Transmission Date: 20080405
  Serious: Yes (Hospitalization, Other)
  Sender: FDA-Public Use
  Company Number: 17934

PATIENT
  Age: 51 Year
  Sex: Female

DRUGS (10)
  1. EPIRUBICIN [Suspect]
     Indication: BREAST CANCER
  2. FLUOROURACIL [Suspect]
     Indication: BREAST CANCER
  3. CYCLOPHOSPHAMIDE [Suspect]
     Indication: BREAST CANCER
  4. RADIOTHERAPY [Concomitant]
  5. NEUPOGEN [Concomitant]
  6. SULFAMETHOXAZOLE AND TRIMETHOPRIM [Concomitant]
  7. AMPHOTERICIN B [Concomitant]
  8. AMIKACIN [Concomitant]
  9. PIPERACILLIN SODIUM [Concomitant]
  10. CIPROFLOXACIN [Concomitant]

REACTIONS (5)
  - LARGE INTESTINAL ULCER [None]
  - METABOLIC ACIDOSIS [None]
  - NEUTROPENIA [None]
  - PSEUDOMEMBRANOUS COLITIS [None]
  - THROMBOCYTOPENIA [None]
